FAERS Safety Report 17059442 (Version 3)
Quarter: 2019Q4

REPORT INFORMATION
  Report Type: Spontaneous
  Country: US (occurrence: US)
  Receive Date: 20191121
  Receipt Date: 20191202
  Transmission Date: 20200122
  Serious: Yes (Hospitalization, Other)
  Sender: FDA-Public Use
  Company Number: US-PFIZER INC-2019498317

PATIENT
  Age: 92 Year
  Sex: Male

DRUGS (1)
  1. AMIODARONE HCL [Suspect]
     Active Substance: AMIODARONE HYDROCHLORIDE
     Indication: ARRHYTHMIA
     Dosage: UNK

REACTIONS (5)
  - Thyroid disorder [Unknown]
  - Bradycardia [Unknown]
  - Fatigue [Unknown]
  - Hypothyroidism [Unknown]
  - Anaemia [Unknown]
